FAERS Safety Report 5301339-8 (Version None)
Quarter: 2007Q2

REPORT INFORMATION
  Report Type: 
  Country: None (occurrence: None)
  Receive Date: 20070418
  Receipt Date: 20070409
  Transmission Date: 20071010
  Serious: Yes (Hospitalization)
  Sender: FDA-Public Use
  Company Number: US-PFIZER INC-2007028650

PATIENT
  Sex: Female
  Weight: 72.6 kg

DRUGS (17)
  1. ZOLOFT [Suspect]
     Indication: DEPRESSION
  2. CHANTIX [Suspect]
     Indication: SMOKING CESSATION THERAPY
     Dates: start: 20070101
  3. METOCLOPRAMIDE [Suspect]
     Indication: NAUSEA
  4. METOCLOPRAMIDE [Suspect]
     Indication: VOMITING
  5. MUCINEX [Suspect]
     Indication: INCREASED UPPER AIRWAY SECRETION
  6. THEOPHYLLINE [Concomitant]
  7. LIPITOR [Concomitant]
  8. LOTREL [Concomitant]
  9. ALBUTEROL [Concomitant]
  10. PROTONIX [Concomitant]
  11. DETROL LA [Concomitant]
  12. ASPIRIN [Concomitant]
  13. METFORMIN HCL [Concomitant]
  14. PLAVIX [Concomitant]
  15. QUININE SULFATE [Concomitant]
  16. GLIPIZIDE [Concomitant]
  17. FERROUS SULFATE [Concomitant]

REACTIONS (6)
  - BRONCHITIS [None]
  - DEPRESSION [None]
  - FEELING ABNORMAL [None]
  - GASTRITIS [None]
  - INCREASED UPPER AIRWAY SECRETION [None]
  - TREMOR [None]
